FAERS Safety Report 18428552 (Version 1)
Quarter: 2020Q4

REPORT INFORMATION
  Report Type: Spontaneous
  Country: ER (occurrence: ER)
  Receive Date: 20201026
  Receipt Date: 20201026
  Transmission Date: 20210114
  Serious: Yes (Death, Other)
  Sender: FDA-Public Use
  Company Number: ER-GLAXOSMITHKLINE-ER2020GSK212230

PATIENT
  Age: 68 Year
  Sex: Female

DRUGS (1)
  1. RANITIDINE HYDROCHLORIDE. [Suspect]
     Active Substance: RANITIDINE HYDROCHLORIDE
     Indication: PEPTIC ULCER
     Dosage: 50 MG (UNDILUTED 50 MG IV PUSH)
     Route: 042

REACTIONS (4)
  - Syncope [Unknown]
  - Product administration error [Unknown]
  - Wrong technique in product usage process [Unknown]
  - Cardiac arrest [Fatal]
